FAERS Safety Report 9177253 (Version 1)
Quarter: 2013Q1

REPORT INFORMATION
  Report Type: Spontaneous
  Country: IT (occurrence: None)
  Receive Date: 20130319
  Receipt Date: 20130319
  Transmission Date: 20140127
  Serious: Yes (Other)
  Sender: FDA-Public Use
  Company Number: AUR-APL-2013-02327

PATIENT
  Age: 76 Year
  Sex: Female

DRUGS (1)
  1. GABAPENTIN (GABAPENTIN) [Suspect]
     Indication: POLYNEUROPATHY

REACTIONS (14)
  - Therapy cessation [None]
  - Confusional state [None]
  - Incoherent [None]
  - Abnormal behaviour [None]
  - Restlessness [None]
  - Persecutory delusion [None]
  - Disturbance in attention [None]
  - Disorientation [None]
  - Agitation [None]
  - Anxiety [None]
  - Hyporeflexia [None]
  - Delirium [None]
  - Somnolence [None]
  - Hypokinesia [None]
